FAERS Safety Report 6229442-9 (Version None)
Quarter: 2009Q2

REPORT INFORMATION
  Report Type: 
  Country: None (occurrence: None)
  Receive Date: 20090615
  Receipt Date: 20090601
  Transmission Date: 20091009
  Serious: Yes (Hospitalization)
  Sender: FDA-Public Use
  Company Number: A0731209A

PATIENT
  Age: 65 Year
  Sex: Male
  Weight: 95.5 kg

DRUGS (7)
  1. AVANDIA [Suspect]
     Route: 048
     Dates: start: 20010101, end: 20070101
  2. CELEXA [Concomitant]
  3. ADVAIR HFA [Concomitant]
  4. METFORMIN HYDROCHLORIDE [Concomitant]
  5. LISINOPRIL [Concomitant]
  6. LOPID [Concomitant]
  7. GLUCOPHAGE [Concomitant]

REACTIONS (3)
  - CARDIAC FAILURE CONGESTIVE [None]
  - INJURY [None]
  - MYOCARDIAL INFARCTION [None]
